FAERS Safety Report 8426648-5 (Version None)
Quarter: 2012Q2

REPORT INFORMATION
  Report Type: 
  Country: None (occurrence: None)
  Receive Date: 20120611
  Receipt Date: 20120605
  Transmission Date: 20120825
  Serious: No
  Sender: FDA-Public Use
  Company Number: US-PFIZER INC-2012135454

PATIENT
  Sex: Female
  Weight: 68 kg

DRUGS (4)
  1. ZETIA [Concomitant]
     Dosage: 10 MG, UNK
  2. ASPIRIN [Concomitant]
     Dosage: UNK
  3. LIPITOR [Suspect]
     Dosage: 80MG ONCE A DAY ON ONE DAY AND 40MG ONCE A DAY ON ANOTHER DAY
     Route: 048
  4. LIPITOR [Suspect]
     Indication: BLOOD CHOLESTEROL INCREASED
     Dosage: UNK, ONCE A DAY
     Route: 048

REACTIONS (3)
  - LOW DENSITY LIPOPROTEIN ABNORMAL [None]
  - HIGH DENSITY LIPOPROTEIN INCREASED [None]
  - BLOOD CHOLESTEROL INCREASED [None]
